FAERS Safety Report 5824196-X (Version None)
Quarter: 2008Q3

REPORT INFORMATION
  Report Type: 
  Country: None (occurrence: None)
  Receive Date: 20080718
  Receipt Date: 20080609
  Transmission Date: 20090109
  Serious: Yes (Other)
  Sender: FDA-Public Use
  Company Number: US-WYE-H04431208

PATIENT
  Age: 56 Year
  Sex: Female
  Weight: 54.48 kg

DRUGS (6)
  1. ADVIL PM [Suspect]
     Indication: INSOMNIA
     Dosage: 2 CAPLETS DAILY, ORAL
     Route: 048
     Dates: start: 20080605, end: 20080606
  2. CALCIUM (CALCIUM) [Concomitant]
  3. ESTRADIOL [Concomitant]
  4. GLUCOSAMINE W/CHONDROITIN SULFATES (ASCORBIC ACID/CHONDROITIN SULATE/G [Concomitant]
  5. MULTIVITAMINS (ASCORBIC ACID/ERGOCALCIFEROL/FOLIC ACID/NICOTINAMIDE/PA [Concomitant]
  6. ADVIL [Concomitant]

REACTIONS (3)
  - DIZZINESS [None]
  - HANGOVER [None]
  - NAUSEA [None]
